FAERS Safety Report 21290367 (Version 1)
Quarter: 2022Q3

REPORT INFORMATION
  Report Type: Spontaneous
  Country: CN (occurrence: CN)
  Receive Date: 20220902
  Receipt Date: 20220902
  Transmission Date: 20221027
  Serious: Yes (Other)
  Sender: FDA-Public Use
  Company Number: CN-009507513-2208CHN010258

PATIENT
  Age: 82 Year
  Sex: Male

DRUGS (2)
  1. CILASTATIN SODIUM\IMIPENEM [Suspect]
     Active Substance: CILASTATIN SODIUM\IMIPENEM
     Indication: Pneumonia
     Dosage: 0.5 GRAM (G), EVERY 8 HOURS (Q8H)
     Route: 041
     Dates: start: 20220731, end: 20220803
  2. CILASTATIN SODIUM\IMIPENEM [Suspect]
     Active Substance: CILASTATIN SODIUM\IMIPENEM
     Dosage: 0.5 GRAM (G), EVERY 6 HOURS (Q6H)
     Route: 041
     Dates: start: 20220803, end: 20220805

REACTIONS (4)
  - Muscle twitching [Recovering/Resolving]
  - Pneumonia [Unknown]
  - Blood creatinine decreased [Unknown]
  - Drug ineffective [Unknown]

NARRATIVE: CASE EVENT DATE: 20220801
